FAERS Safety Report 16640121 (Version 3)
Quarter: 2019Q4

REPORT INFORMATION
  Report Type: Report from Study
  Country: HN (occurrence: HN)
  Receive Date: 20190727
  Receipt Date: 20191018
  Transmission Date: 20200122
  Serious: Yes (Hospitalization, Other)
  Sender: FDA-Public Use
  Company Number: HN-ELI_LILLY_AND_COMPANY-HN201907007159

PATIENT
  Age: 52 Year
  Sex: Male

DRUGS (4)
  1. CETUXIMAB. [Suspect]
     Active Substance: CETUXIMAB
     Dosage: 375 MG, WEEKLY (1/W)
     Route: 065
  2. CETUXIMAB. [Suspect]
     Active Substance: CETUXIMAB
     Dosage: 300 MG, WEEKLY (1/W)
     Route: 065
     Dates: start: 201906
  3. CETUXIMAB. [Suspect]
     Active Substance: CETUXIMAB
     Dosage: 570 MG, UNKNOWN
     Route: 065
     Dates: start: 20190918
  4. CETUXIMAB. [Suspect]
     Active Substance: CETUXIMAB
     Indication: HEAD AND NECK CANCER
     Dosage: 700 MG, UNKNOWN
     Route: 065
     Dates: start: 20190610, end: 20190610

REACTIONS (8)
  - Platelet count decreased [Not Recovered/Not Resolved]
  - Decreased appetite [Not Recovered/Not Resolved]
  - Neutropenia [Not Recovered/Not Resolved]
  - General physical health deterioration [Not Recovered/Not Resolved]
  - Asthenia [Not Recovered/Not Resolved]
  - Anaemia [Not Recovered/Not Resolved]
  - Weight decreased [Not Recovered/Not Resolved]
  - Bacterial tracheitis [Not Recovered/Not Resolved]

NARRATIVE: CASE EVENT DATE: 2019
